FAERS Safety Report 15500462 (Version 86)
Quarter: 2021Q3

REPORT INFORMATION
  Report Type: Spontaneous
  Country: CA (occurrence: CA)
  Receive Date: 20181015
  Receipt Date: 20210706
  Transmission Date: 20211014
  Serious: Yes (Other)
  Sender: FDA-Public Use
  Company Number: CA-PFIZER INC-2018343713

PATIENT
  Age: 42 Year
  Sex: Male
  Weight: 77.5 kg

DRUGS (74)
  1. ELELYSO [Suspect]
     Active Substance: TALIGLUCERASE ALFA
     Dosage: 2400 IU, EVERY 2 WEEKS
     Route: 042
     Dates: start: 20181203
  2. ELELYSO [Suspect]
     Active Substance: TALIGLUCERASE ALFA
     Dosage: 2400 IU, EVERY 2 WEEKS
     Route: 042
     Dates: start: 20190819
  3. ELELYSO [Suspect]
     Active Substance: TALIGLUCERASE ALFA
     Dosage: 2400 IU, EVERY 2 WEEKS
     Route: 042
     Dates: start: 20191028
  4. ELELYSO [Suspect]
     Active Substance: TALIGLUCERASE ALFA
     Dosage: 2400 IU, EVERY 2 WEEKS
     Route: 042
     Dates: start: 20191209
  5. ELELYSO [Suspect]
     Active Substance: TALIGLUCERASE ALFA
     Dosage: 2400 IU, EVERY 2 WEEKS
     Route: 042
     Dates: start: 20191223
  6. ELELYSO [Suspect]
     Active Substance: TALIGLUCERASE ALFA
     Dosage: 2400 IU, EVERY 2 WEEKS
     Route: 042
     Dates: start: 20200325
  7. BENADRYL [Concomitant]
     Active Substance: DIPHENHYDRAMINE HYDROCHLORIDE
     Indication: PREMEDICATION
     Dosage: 50 MG, UNK
     Route: 048
     Dates: start: 20180917
  8. BENADRYL [Concomitant]
     Active Substance: DIPHENHYDRAMINE HYDROCHLORIDE
     Dosage: 50 MG, UNK
     Route: 048
     Dates: start: 20181015
  9. BENADRYL [Concomitant]
     Active Substance: DIPHENHYDRAMINE HYDROCHLORIDE
     Dosage: 50 MG, UNK
     Route: 048
     Dates: start: 20181203
  10. TYLENOL [Concomitant]
     Active Substance: ACETAMINOPHEN
     Dosage: 650 MG, AS NEEDED
     Route: 048
     Dates: start: 20181119
  11. ELELYSO [Suspect]
     Active Substance: TALIGLUCERASE ALFA
     Indication: GAUCHER^S DISEASE TYPE I
     Dosage: 2200 IU, EVERY 2 WEEKS
     Route: 042
     Dates: start: 20180823, end: 20180823
  12. ELELYSO [Suspect]
     Active Substance: TALIGLUCERASE ALFA
     Dosage: 2500 IU, EVERY 2 WEEKS (RATE: 80ML/HOUR)
     Route: 042
  13. ELELYSO [Suspect]
     Active Substance: TALIGLUCERASE ALFA
     Dosage: 2400 IU, EVERY 2 WEEKS
     Route: 042
     Dates: start: 20181105, end: 20181105
  14. ELELYSO [Suspect]
     Active Substance: TALIGLUCERASE ALFA
     Dosage: 2400 IU, EVERY 2 WEEKS
     Route: 042
     Dates: start: 20190711, end: 20190711
  15. ELELYSO [Suspect]
     Active Substance: TALIGLUCERASE ALFA
     Dosage: 2400 IU, EVERY 2 WEEKS
     Route: 042
     Dates: start: 20190930
  16. ELELYSO [Suspect]
     Active Substance: TALIGLUCERASE ALFA
     Dosage: 2400 IU, EVERY 2 WEEKS
     Route: 042
     Dates: start: 20191111
  17. ELELYSO [Suspect]
     Active Substance: TALIGLUCERASE ALFA
     Dosage: 2400 IU, EVERY 2 WEEKS
     Route: 042
     Dates: start: 20200210
  18. ELELYSO [Suspect]
     Active Substance: TALIGLUCERASE ALFA
     Dosage: 2400 IU, EVERY 2 WEEKS
     Route: 042
     Dates: start: 20200615
  19. ELELYSO [Suspect]
     Active Substance: TALIGLUCERASE ALFA
     Dosage: 2400 IU, EVERY 2 WEEKS
     Route: 042
     Dates: start: 20200727
  20. BENADRYL [Concomitant]
     Active Substance: DIPHENHYDRAMINE HYDROCHLORIDE
     Dosage: 50 MG, UNK
     Route: 048
     Dates: start: 20181119
  21. PANTOLOC [Concomitant]
     Active Substance: PANTOPRAZOLE SODIUM
     Dosage: 40 MG, 1X/DAY
     Route: 048
  22. TYLENOL [Concomitant]
     Active Substance: ACETAMINOPHEN
     Dosage: 1000 MG, UNK
     Route: 048
     Dates: start: 20190210, end: 20190210
  23. TYLENOL [Concomitant]
     Active Substance: ACETAMINOPHEN
     Dosage: 650 MG, UNK
     Dates: start: 20191125
  24. ELELYSO [Suspect]
     Active Substance: TALIGLUCERASE ALFA
     Dosage: 2400 IU, EVERY 2 WEEKS
     Route: 042
     Dates: start: 20190916
  25. ELELYSO [Suspect]
     Active Substance: TALIGLUCERASE ALFA
     Dosage: 2400 IU(6VIALS), EVERY 2 WEEKS
     Route: 042
     Dates: start: 20200807, end: 202104
  26. PANTOPRAZOLE [Concomitant]
     Active Substance: PANTOPRAZOLE
     Dosage: UNK
  27. TYLENOL [Concomitant]
     Active Substance: ACETAMINOPHEN
     Dosage: 650 MG, AS NEEDED
     Route: 048
     Dates: start: 20181217
  28. ELELYSO [Suspect]
     Active Substance: TALIGLUCERASE ALFA
     Dosage: 2400 IU, EVERY 2 WEEKS
     Route: 042
     Dates: start: 20190128, end: 20190128
  29. ELELYSO [Suspect]
     Active Substance: TALIGLUCERASE ALFA
     Dosage: 2400 IU, EVERY 2 WEEKS
     Route: 042
     Dates: start: 20190225, end: 20190225
  30. ELELYSO [Suspect]
     Active Substance: TALIGLUCERASE ALFA
     Dosage: 2400 IU, EVERY 2 WEEKS
     Route: 042
     Dates: start: 20190422
  31. ELELYSO [Suspect]
     Active Substance: TALIGLUCERASE ALFA
     Dosage: 2400 IU, EVERY 2 WEEKS
     Route: 042
     Dates: start: 20200626
  32. TYLENOL [Concomitant]
     Active Substance: ACETAMINOPHEN
     Dosage: 650 MG, AS NEEDED
     Route: 048
     Dates: start: 20190102
  33. ELELYSO [Suspect]
     Active Substance: TALIGLUCERASE ALFA
     Dosage: 2400 IU, EVERY 2 WEEKS
     Route: 042
     Dates: start: 20181119
  34. ELELYSO [Suspect]
     Active Substance: TALIGLUCERASE ALFA
     Dosage: 2400 IU, EVERY 2 WEEKS
     Route: 042
     Dates: start: 20181217
  35. ELELYSO [Suspect]
     Active Substance: TALIGLUCERASE ALFA
     Dosage: 2400 IU, EVERY 2 WEEKS
     Route: 042
     Dates: start: 20190114
  36. ELELYSO [Suspect]
     Active Substance: TALIGLUCERASE ALFA
     Dosage: 2400 IU, EVERY 2 WEEKS
     Route: 042
     Dates: start: 20190210, end: 20190210
  37. ELELYSO [Suspect]
     Active Substance: TALIGLUCERASE ALFA
     Dosage: 2400 IU, EVERY 2 WEEKS
     Route: 042
     Dates: start: 20190605
  38. ELELYSO [Suspect]
     Active Substance: TALIGLUCERASE ALFA
     Dosage: 2400 IU, EVERY 2 WEEKS
     Route: 042
     Dates: start: 20190620, end: 20190620
  39. ELELYSO [Suspect]
     Active Substance: TALIGLUCERASE ALFA
     Dosage: 2400 IU, EVERY 2 WEEKS
     Route: 042
     Dates: start: 20191125
  40. ELELYSO [Suspect]
     Active Substance: TALIGLUCERASE ALFA
     Dosage: 2400 IU, EVERY 2 WEEKS
     Route: 042
     Dates: start: 20200309
  41. ELELYSO [Suspect]
     Active Substance: TALIGLUCERASE ALFA
     Dosage: 2400 IU, EVERY 2 WEEKS
     Route: 042
     Dates: start: 20200406
  42. ELELYSO [Suspect]
     Active Substance: TALIGLUCERASE ALFA
     Dosage: 2400 IU, EVERY 2 WEEKS
     Route: 042
     Dates: start: 20200504
  43. ELELYSO [Suspect]
     Active Substance: TALIGLUCERASE ALFA
     Dosage: 2400 IU, EVERY 2 WEEKS
     Route: 042
     Dates: start: 20200518
  44. BENADRYL [Concomitant]
     Active Substance: DIPHENHYDRAMINE HYDROCHLORIDE
     Dosage: 50 MG, UNK
     Route: 048
     Dates: start: 20181105
  45. TYLENOL [Concomitant]
     Active Substance: ACETAMINOPHEN
     Dosage: 650 MG, AS NEEDED
     Route: 048
  46. VITAMIN D [ERGOCALCIFEROL] [Concomitant]
     Active Substance: ERGOCALCIFEROL
     Dosage: UNK
  47. ELELYSO [Suspect]
     Active Substance: TALIGLUCERASE ALFA
     Dosage: 2400 IU, EVERY 2 WEEKS
     Route: 042
     Dates: start: 20180917, end: 20180917
  48. ELELYSO [Suspect]
     Active Substance: TALIGLUCERASE ALFA
     Dosage: 2400 IU, EVERY 2 WEEKS RATE OF 33.3 ML/H
     Route: 042
     Dates: start: 20181002
  49. ELELYSO [Suspect]
     Active Substance: TALIGLUCERASE ALFA
     Dosage: 2400 IU, EVERY 2 WEEKS
     Route: 042
     Dates: start: 20190325
  50. ELELYSO [Suspect]
     Active Substance: TALIGLUCERASE ALFA
     Dosage: 2400 IU, EVERY 2 WEEKS
     Route: 042
     Dates: start: 20190506
  51. ELELYSO [Suspect]
     Active Substance: TALIGLUCERASE ALFA
     Dosage: 2400 IU, EVERY 2 WEEKS
     Route: 042
     Dates: start: 20190902
  52. ELELYSO [Suspect]
     Active Substance: TALIGLUCERASE ALFA
     Dosage: 2400 IU, EVERY 2 WEEKS
     Route: 042
     Dates: start: 20200113
  53. ACETAMINOPHEN. [Concomitant]
     Active Substance: ACETAMINOPHEN
     Indication: PREMEDICATION
     Dosage: 650 MG, AS NEEDED
     Route: 048
     Dates: start: 20180917
  54. BENADRYL [Concomitant]
     Active Substance: DIPHENHYDRAMINE HYDROCHLORIDE
     Dosage: 50 MG, UNK
     Route: 048
     Dates: start: 20181217
  55. BENADRYL [Concomitant]
     Active Substance: DIPHENHYDRAMINE HYDROCHLORIDE
     Dosage: 50 MG, UNK
     Route: 048
     Dates: start: 20190128
  56. ELELYSO [Suspect]
     Active Substance: TALIGLUCERASE ALFA
     Indication: THROMBOCYTOPENIA
     Dosage: 2400 IU, EVERY 2 WEEKS
     Route: 042
     Dates: start: 20180905, end: 20180905
  57. ELELYSO [Suspect]
     Active Substance: TALIGLUCERASE ALFA
     Dosage: 2400 IU, EVERY 2 WEEKS (RATE: 80ML/HOUR)
     Route: 042
     Dates: start: 20181015
  58. ELELYSO [Suspect]
     Active Substance: TALIGLUCERASE ALFA
     Dosage: 2400 IU, EVERY 2 WEEKS
     Route: 042
     Dates: start: 20190102
  59. ELELYSO [Suspect]
     Active Substance: TALIGLUCERASE ALFA
     Dosage: 2400 IU, EVERY 2 WEEKS
     Route: 042
     Dates: start: 20190311
  60. ELELYSO [Suspect]
     Active Substance: TALIGLUCERASE ALFA
     Dosage: 2400 IU, EVERY 2 WEEKS
     Route: 042
     Dates: start: 20190408
  61. ELELYSO [Suspect]
     Active Substance: TALIGLUCERASE ALFA
     Dosage: 2400 IU, EVERY 2 WEEKS
     Route: 042
     Dates: start: 20190520
  62. ELELYSO [Suspect]
     Active Substance: TALIGLUCERASE ALFA
     Dosage: 2400 IU, EVERY 2 WEEKS
     Route: 042
     Dates: start: 20200224
  63. ELELYSO [Suspect]
     Active Substance: TALIGLUCERASE ALFA
     Dosage: 2400 IU, EVERY 2 WEEKS
     Route: 042
     Dates: start: 20200420
  64. ELELYSO [Suspect]
     Active Substance: TALIGLUCERASE ALFA
     Dosage: 2400 IU, EVERY 2 WEEKS
     Route: 042
     Dates: start: 20200713
  65. BENADRYL [Concomitant]
     Active Substance: DIPHENHYDRAMINE HYDROCHLORIDE
     Dosage: 50 MG, UNK
     Route: 048
     Dates: start: 20190102
  66. TYLENOL [Concomitant]
     Active Substance: ACETAMINOPHEN
     Indication: HEADACHE
     Dosage: 650 MG, AS NEEDED
     Route: 048
  67. TYLENOL [Concomitant]
     Active Substance: ACETAMINOPHEN
     Dosage: 650 MG, AS NEEDED
     Route: 048
     Dates: start: 20181203
  68. TYLENOL [Concomitant]
     Active Substance: ACETAMINOPHEN
     Dosage: 650 MG, AS NEEDED
     Route: 048
     Dates: start: 20190114
  69. ASTRAZENECA COVID?19 VACCINE [Concomitant]
     Active Substance: AZD-1222
     Dosage: UNK
     Route: 042
  70. ELELYSO [Suspect]
     Active Substance: TALIGLUCERASE ALFA
     Dosage: 2400 IU, EVERY 2 WEEKS
     Route: 042
     Dates: start: 20190731
  71. ELELYSO [Suspect]
     Active Substance: TALIGLUCERASE ALFA
     Dosage: 2400 IU, EVERY 2 WEEKS
     Route: 042
     Dates: start: 20191014
  72. ELELYSO [Suspect]
     Active Substance: TALIGLUCERASE ALFA
     Dosage: 2400 IU, EVERY 2 WEEKS
     Route: 042
     Dates: start: 20200601
  73. BENADRYL [Concomitant]
     Active Substance: DIPHENHYDRAMINE HYDROCHLORIDE
     Dosage: 50 MG, UNK
     Route: 048
     Dates: start: 20190114
  74. TYLENOL [Concomitant]
     Active Substance: ACETAMINOPHEN
     Dosage: 500 MG, AS NEEDED
     Route: 048
     Dates: start: 20190128

REACTIONS (32)
  - Musculoskeletal discomfort [Not Recovered/Not Resolved]
  - Dizziness [Unknown]
  - Reticulocyte percentage increased [Unknown]
  - Flushing [Not Recovered/Not Resolved]
  - Serum ferritin decreased [Unknown]
  - Vitamin D decreased [Recovering/Resolving]
  - Intentional product use issue [Unknown]
  - Thrombocytopenia [Not Recovered/Not Resolved]
  - Pyrexia [Recovered/Resolved]
  - Platelet count decreased [Recovering/Resolving]
  - Rhinorrhoea [Unknown]
  - Weight increased [Not Recovered/Not Resolved]
  - Weight increased [Not Recovered/Not Resolved]
  - Back pain [Not Recovered/Not Resolved]
  - Eosinophil count decreased [Unknown]
  - Reticulocyte count increased [Unknown]
  - Heart rate decreased [Unknown]
  - Inappropriate schedule of product administration [Unknown]
  - Musculoskeletal chest pain [Recovered/Resolved]
  - Device infusion issue [Unknown]
  - Infection [Unknown]
  - Respiratory rate decreased [Not Recovered/Not Resolved]
  - Renal impairment [Unknown]
  - Haemoglobin increased [Recovering/Resolving]
  - Intentional dose omission [Unknown]
  - Infusion site extravasation [Unknown]
  - Spinal pain [Recovered/Resolved]
  - Weight decreased [Not Recovered/Not Resolved]
  - Headache [Unknown]
  - Hypotension [Not Recovered/Not Resolved]
  - Hepatosplenomegaly [Unknown]
  - Off label use [Unknown]

NARRATIVE: CASE EVENT DATE: 2018
